FAERS Safety Report 25506649 (Version 1)
Quarter: 2025Q3

REPORT INFORMATION
  Report Type: Spontaneous
  Country: GB (occurrence: GB)
  Receive Date: 20250702
  Receipt Date: 20250702
  Transmission Date: 20251021
  Serious: Yes (Life-Threatening, Other)
  Sender: ELI LILLY AND COMPANY
  Company Number: GB-MHRA-WEBRADR-202506270030098200-GDNFY

PATIENT
  Age: 53 Year
  Sex: Female
  Weight: 98 kg

DRUGS (1)
  1. MOUNJARO [Suspect]
     Active Substance: TIRZEPATIDE
     Indication: Weight control
     Route: 065
     Dates: start: 20241114, end: 20250427

REACTIONS (4)
  - Pancreatitis [Recovered/Resolved]
  - Liver injury [Unknown]
  - Gallbladder polyp [Unknown]
  - Hypophagia [Unknown]

NARRATIVE: CASE EVENT DATE: 20250427
